FAERS Safety Report 18055349 (Version 1)
Quarter: 2020Q3

REPORT INFORMATION
  Report Type: Spontaneous
  Country: MX (occurrence: MX)
  Receive Date: 20200722
  Receipt Date: 20200722
  Transmission Date: 20201103
  Serious: Yes (Hospitalization)
  Sender: FDA-Public Use
  Company Number: MX-AMNEAL PHARMACEUTICALS-2020-AMRX-02050

PATIENT
  Age: 42 Year
  Sex: Female

DRUGS (4)
  1. CLONAZEPAM. [Suspect]
     Active Substance: CLONAZEPAM
     Indication: SUICIDE ATTEMPT
     Dosage: 50 MILLIGRAM, SINGLE
     Route: 048
  2. POTASSIUM CHLORIDE. [Suspect]
     Active Substance: POTASSIUM CHLORIDE
     Indication: SUICIDE ATTEMPT
     Dosage: 100 TABLETS, SINGLE
     Route: 048
  3. POTASSIUM CHLORIDE. [Suspect]
     Active Substance: POTASSIUM CHLORIDE
     Dosage: 50 TABLETS, AN YEAR AGO
     Route: 065
  4. ALCOHOL. [Suspect]
     Active Substance: ALCOHOL
     Indication: SUICIDE ATTEMPT
     Dosage: UNK, SINGLE
     Route: 048

REACTIONS (6)
  - Bezoar [Recovered/Resolved]
  - Sinus tachycardia [Recovered/Resolved]
  - Intentional overdose [Unknown]
  - Somnolence [Recovered/Resolved]
  - Hyperlactacidaemia [Recovered/Resolved]
  - Metabolic acidosis [Recovered/Resolved]
